FAERS Safety Report 7652631-3 (Version None)
Quarter: 2011Q3

REPORT INFORMATION
  Report Type: 
  Country: None (occurrence: None)
  Receive Date: 20110728
  Receipt Date: 20110712
  Transmission Date: 20111222
  Serious: Yes (Life-Threatening, Hospitalization)
  Sender: FDA-Public Use
  Company Number: 2011MA008734

PATIENT
  Age: 34 Year
  Sex: Female

DRUGS (1)
  1. PROPYLTHIOURACIL [Suspect]
     Indication: BASEDOW'S DISEASE
     Dosage: 150 MG;BID;PO
     Route: 048

REACTIONS (13)
  - BILIARY TRACT DISORDER [None]
  - INFLAMMATION [None]
  - GRAFT DYSFUNCTION [None]
  - HEPATIC ENCEPHALOPATHY [None]
  - CHOLESTASIS [None]
  - NO THERAPEUTIC RESPONSE [None]
  - POST PROCEDURAL COMPLICATION [None]
  - LIVER TRANSPLANT [None]
  - LIVER TRANSPLANT REJECTION [None]
  - SURGICAL PROCEDURE REPEATED [None]
  - POST PROCEDURAL BILE LEAK [None]
  - ACUTE HEPATIC FAILURE [None]
  - HEPATIC NECROSIS [None]
